FAERS Safety Report 7689774-4 (Version None)
Quarter: 2011Q3

REPORT INFORMATION
  Report Type: 
  Country: None (occurrence: None)
  Receive Date: 20110817
  Receipt Date: 20110804
  Transmission Date: 20111222
  Serious: Yes (Other)
  Sender: FDA-Public Use
  Company Number: GB-MYLANLABS-2011S1016247

PATIENT
  Age: 13 Year
  Sex: Female

DRUGS (2)
  1. OMEGA 3 FATTY ACID [Concomitant]
     Indication: PRODUCT USED FOR UNKNOWN INDICATION
  2. FLUOXETINE [Suspect]
     Indication: DEPRESSED MOOD
     Dates: start: 20110629, end: 20110713

REACTIONS (2)
  - RASH PRURITIC [None]
  - ERYTHEMA [None]
